FAERS Safety Report 21391161 (Version 2)
Quarter: 2022Q4

REPORT INFORMATION
  Report Type: Report from Study
  Country: AU (occurrence: AU)
  Receive Date: 20220929
  Receipt Date: 20221008
  Transmission Date: 20230113
  Serious: Yes (Other)
  Sender: FDA-Public Use
  Company Number: AU-NOVARTISPH-NVSC2022AU218643

PATIENT
  Sex: Male

DRUGS (1)
  1. SCEMBLIX [Suspect]
     Active Substance: ASCIMINIB HYDROCHLORIDE
     Indication: Myeloid leukaemia
     Dosage: 80 MG (STARTED TWO MONTHS AGO)
     Route: 065

REACTIONS (5)
  - Skin cancer [Unknown]
  - Malaise [Unknown]
  - Skin discolouration [Unknown]
  - Pain in extremity [Unknown]
  - Drug ineffective [Unknown]
